FAERS Safety Report 8817590 (Version 2)
Quarter: 2012Q4

REPORT INFORMATION
  Report Type: 
  Country: IT (occurrence: IT)
  Receive Date: 20121001
  Receipt Date: 20121126
  Transmission Date: 20130627
  Serious: Yes (Death, Hospitalization)
  Sender: FDA-Public Use
  Company Number: IT-SANOFI-AVENTIS-2012SA069307

PATIENT
  Age: 47 Year
  Sex: Female

DRUGS (3)
  1. TAXOTERE [Suspect]
     Indication: LUNG CANCER METASTATIC
     Route: 042
     Dates: start: 20120912, end: 20120912
  2. TARCEVA [Concomitant]
     Indication: ADENOCARCINOMA LUNG
     Route: 048
     Dates: start: 20120601, end: 20120901
  3. CORTISONE [Concomitant]

REACTIONS (5)
  - Electrolyte imbalance [Fatal]
  - Cardiac arrest [Fatal]
  - Mucosal inflammation [Fatal]
  - Diarrhoea [Fatal]
  - Anaemia [Fatal]
